FAERS Safety Report 18118622 (Version 5)
Quarter: 2022Q3

REPORT INFORMATION
  Report Type: Spontaneous
  Country: US (occurrence: US)
  Receive Date: 20200806
  Receipt Date: 20220914
  Transmission Date: 20221027
  Serious: Yes (Other)
  Sender: FDA-Public Use
  Company Number: US-PFIZER INC-2020296883

PATIENT
  Age: 50 Year
  Sex: Female

DRUGS (2)
  1. IBRANCE [Suspect]
     Active Substance: PALBOCICLIB
     Dosage: 125 MG
  2. IBRANCE [Suspect]
     Active Substance: PALBOCICLIB
     Dosage: 100 MG

REACTIONS (16)
  - COVID-19 [Unknown]
  - Neoplasm progression [Unknown]
  - Product dose omission in error [Unknown]
  - Full blood count abnormal [Unknown]
  - Vasodilatation [Unknown]
  - Nausea [Unknown]
  - Vomiting [Unknown]
  - Vertigo [Unknown]
  - Flushing [Unknown]
  - Cold sweat [Unknown]
  - Hot flush [Unknown]
  - Blood oestrogen decreased [Unknown]
  - Ovarian disorder [Unknown]
  - Memory impairment [Unknown]
  - Illness [Unknown]
  - Malaise [Unknown]

NARRATIVE: CASE EVENT DATE: 20210719
